FAERS Safety Report 6532444-6 (Version None)
Quarter: 2010Q1

REPORT INFORMATION
  Report Type: 
  Country: None (occurrence: None)
  Receive Date: 20100111
  Receipt Date: 20100105
  Transmission Date: 20100710
  Serious: Yes (Other)
  Sender: FDA-Public Use
  Company Number: US-ASTRAZENECA-2009UW16200

PATIENT
  Age: 48 Year
  Sex: Female
  Weight: 89.8 kg

DRUGS (5)
  1. SEROQUEL [Suspect]
     Indication: ANXIETY
     Route: 048
     Dates: start: 20040101, end: 20060701
  2. SEROQUEL [Suspect]
     Indication: DEPRESSION
     Route: 048
     Dates: start: 20040101, end: 20060701
  3. WELLBUTRIN [Concomitant]
  4. BUSPAR [Concomitant]
  5. CLONAZEPAM [Concomitant]

REACTIONS (7)
  - CARDIAC DISORDER [None]
  - CHEST PAIN [None]
  - FOOT FRACTURE [None]
  - HYPOAESTHESIA [None]
  - MOOD SWINGS [None]
  - TYPE 2 DIABETES MELLITUS [None]
  - WEIGHT INCREASED [None]
